FAERS Safety Report 7475898-3 (Version None)
Quarter: 2011Q2

REPORT INFORMATION
  Report Type: 
  Country: None (occurrence: None)
  Receive Date: 20110512
  Receipt Date: 20110428
  Transmission Date: 20111010
  Serious: Yes (Hospitalization)
  Sender: FDA-Public Use
  Company Number: FR-JNJFOC-20110501326

PATIENT
  Age: 82 Year
  Sex: Male

DRUGS (3)
  1. DECAPEPTYL [Concomitant]
     Indication: PROSTATE CANCER
     Route: 065
  2. HYDROCORTISONE [Concomitant]
     Indication: PRODUCT USED FOR UNKNOWN INDICATION
     Route: 065
  3. NIZORAL [Suspect]
     Indication: PROSTATE CANCER
     Route: 048

REACTIONS (4)
  - OFF LABEL USE [None]
  - CARDIAC FIBRILLATION [None]
  - RENAL FAILURE [None]
  - OVERDOSE [None]
